FAERS Safety Report 16586063 (Version 1)
Quarter: 2019Q3

REPORT INFORMATION
  Report Type: Spontaneous
  Country: US (occurrence: US)
  Receive Date: 20190604
  Receipt Date: 20190604
  Transmission Date: 20191004
  Serious: No
  Sender: FDA-Public Use
  Company Number: None

PATIENT
  Sex: Female

DRUGS (2)
  1. CARVEDILOL. [Suspect]
     Active Substance: CARVEDILOL
  2. BUPROPION HCL EXTENDED RELEASE [Suspect]
     Active Substance: BUPROPION HYDROCHLORIDE

REACTIONS (6)
  - Chest pain [None]
  - Depression [None]
  - Dizziness [None]
  - Product dispensing error [None]
  - Wrong product administered [None]
  - Condition aggravated [None]

NARRATIVE: CASE EVENT DATE: 2019
